FAERS Safety Report 4696412-1 (Version None)
Quarter: 2005Q2

REPORT INFORMATION
  Report Type: 
  Country: None (occurrence: None)
  Receive Date: 20050620
  Receipt Date: 20050606
  Transmission Date: 20051028
  Serious: Yes (Disabling)
  Sender: FDA-Public Use
  Company Number: 214429

PATIENT
  Age: 88 Year
  Sex: Female

DRUGS (3)
  1. AVASTIN [Suspect]
     Indication: COLON CANCER
     Dosage: 5 MG/KG, Q3W, INTRAVENOUS
     Route: 042
     Dates: start: 20041101
  2. FLUOROURACIL [Suspect]
     Indication: COLON CANCER
     Dates: start: 20041101
  3. LEUCOVORIN CALCIUM [Concomitant]

REACTIONS (5)
  - BLOOD OSMOLARITY ABNORMAL [None]
  - CEREBRAL DISORDER [None]
  - FALL [None]
  - HYPONATRAEMIA [None]
  - LACUNAR INFARCTION [None]
